FAERS Safety Report 9154924 (Version 1)
Quarter: 2013Q1

REPORT INFORMATION
  Report Type: Spontaneous
  Country: IT (occurrence: None)
  Receive Date: 20130208
  Receipt Date: 20130208
  Transmission Date: 20140127
  Serious: Yes (Other)
  Sender: FDA-Public Use
  Company Number: FK201300372

PATIENT
  Age: 49 Year
  Sex: Male
  Weight: 110 kg

DRUGS (3)
  1. OXALIPLATIN (MANUFACTURER UNKNOWN) (OXALIPLATIN) (OXALIPLATIN) [Suspect]
     Route: 042
     Dates: start: 20120905, end: 20120921
  2. FLUOROURACIL (FLUOROURACIL) (FLUOROURACIL) [Suspect]
     Route: 042
     Dates: start: 20120905, end: 20120921
  3. FOLINIC ACID (FOLINIC ACID) [Concomitant]

REACTIONS (3)
  - Cholestasis [None]
  - Gamma-glutamyltransferase increased [None]
  - Hypertransaminasaemia [None]
